FAERS Safety Report 7360041-1 (Version None)
Quarter: 2011Q1

REPORT INFORMATION
  Report Type: 
  Country: None (occurrence: None)
  Receive Date: 20110317
  Receipt Date: 20081015
  Transmission Date: 20110831
  Serious: Yes (Hospitalization)
  Sender: FDA-Public Use
  Company Number: GB-MYLANLABS-2011S1005358

PATIENT
  Age: 26 Year
  Sex: Female

DRUGS (17)
  1. FOLIC ACID [Concomitant]
  2. PREGABALIN [Concomitant]
  3. ALFACALCIDOL [Concomitant]
  4. ACETAMINOPHEN [Concomitant]
  5. PERINDOPRIL [Concomitant]
  6. CARVEDILOL [Concomitant]
  7. NICOTINE [Concomitant]
  8. CYSTAGON [Suspect]
     Route: 048
     Dates: start: 20080705
  9. CITALOPRAM HYDROBROMIDE [Concomitant]
  10. CLONAZEPAM [Concomitant]
  11. DARBEPOETIN [Concomitant]
  12. LEVOTHYROXINE SODIUM [Concomitant]
  13. ONDANSETRON [Concomitant]
  14. CYSTAGON [Suspect]
     Indication: CYSTINOSIS
     Route: 048
  15. SENNA [Concomitant]
  16. LANSOPRAZOLE [Concomitant]
  17. QUININE [Concomitant]

REACTIONS (4)
  - NAUSEA [None]
  - HEADACHE [None]
  - ABDOMINAL PAIN [None]
  - PNEUMONIA [None]
